FAERS Safety Report 4324770-6 (Version None)
Quarter: 2004Q1

REPORT INFORMATION
  Report Type: 
  Country: None (occurrence: None)
  Receive Date: 20040326
  Receipt Date: 20031223
  Transmission Date: 20041129
  Serious: Yes (Other)
  Sender: FDA-Public Use
  Company Number: US-GLAXOSMITHKLINE-A0444150A

PATIENT
  Age: 59 Year
  Sex: Female
  Weight: 59.5 kg

DRUGS (3)
  1. ADVAIR DISKUS 100/50 [Suspect]
     Indication: CHRONIC OBSTRUCTIVE AIRWAYS DISEASE
     Route: 055
  2. EVISTA [Concomitant]
     Dosage: 600MG PER DAY
  3. ATROVENT [Concomitant]
     Dosage: 2PUFF FOUR TIMES PER DAY

REACTIONS (3)
  - EPISTAXIS [None]
  - FACIAL PAIN [None]
  - TOOTHACHE [None]
